FAERS Safety Report 8926093 (Version 1)
Quarter: 2012Q4

REPORT INFORMATION
  Report Type: 
  Country: US (occurrence: US)
  Receive Date: 20121126
  Receipt Date: 20121126
  Transmission Date: 20130627
  Serious: No
  Sender: FDA-Public Use
  Company Number: US-009507513-1211USA005999

PATIENT
  Age: 27 Year
  Sex: Female

DRUGS (1)
  1. NUVARING [Suspect]
     Dosage: 1 ring for 3 weeks on and 1 week off
     Route: 067
     Dates: start: 201109

REACTIONS (2)
  - Vulvovaginal discomfort [Not Recovered/Not Resolved]
  - Product quality issue [Unknown]
